FAERS Safety Report 5404429-4 (Version None)
Quarter: 2007Q3

REPORT INFORMATION
  Report Type: 
  Country: None (occurrence: None)
  Receive Date: 20070713
  Receipt Date: 20070223
  Transmission Date: 20080115
  Serious: Yes (Hospitalization)
  Sender: FDA-Public Use
  Company Number: US-JNJFOC-20061204410

PATIENT
  Age: 22 Year
  Sex: Female
  Weight: 146.4 kg

DRUGS (5)
  1. ORTHO EVRA [Suspect]
     Indication: CONTRACEPTION
     Dosage: TRANSDERMAL
     Route: 062
  2. ORTHO TRI-CYCLEN [Suspect]
     Indication: DRUG USE FOR UNKNOWN INDICATION
     Dosage: 1 DOSE (S), 1 IN 1 DAY
     Dates: start: 20040101, end: 20060901
  3. GLUCOPHAGE (JNJ16269110 COMPARATOR) TABLET [Concomitant]
  4. ACTOS (PIOGLITAZONE) UNSPECIFIED [Concomitant]
  5. ADVAIR (SERETIDE MITE) UNSPECIFIED [Concomitant]

REACTIONS (1)
  - PULMONARY EMBOLISM [None]
